FAERS Safety Report 17074593 (Version 1)
Quarter: 2019Q4

REPORT INFORMATION
  Report Type: Report from Study
  Country: US (occurrence: US)
  Receive Date: 20191126
  Receipt Date: 20191126
  Transmission Date: 20200122
  Serious: Yes (Other)
  Sender: FDA-Public Use
  Company Number: US-ROCHE-2397722

PATIENT
  Sex: Female
  Weight: 26.5 kg

DRUGS (1)
  1. NUTROPIN [Suspect]
     Active Substance: SOMATROPIN
     Indication: BODY HEIGHT BELOW NORMAL
     Dosage: 1.4MG QD
     Route: 058

REACTIONS (4)
  - Vomiting [Unknown]
  - Coeliac disease [Unknown]
  - Weight decreased [Unknown]
  - Urogenital disorder [Unknown]
